FAERS Safety Report 13080621 (Version 5)
Quarter: 2017Q4

REPORT INFORMATION
  Report Type: Spontaneous
  Country: US (occurrence: US)
  Receive Date: 20170103
  Receipt Date: 20171128
  Transmission Date: 20180320
  Serious: Yes (Hospitalization)
  Sender: FDA-Public Use
  Company Number: US-PFIZER INC-2016605452

PATIENT
  Age: 78 Year
  Sex: Female
  Weight: 64.4 kg

DRUGS (19)
  1. FENTANYL CITRATE. [Suspect]
     Active Substance: FENTANYL CITRATE
     Indication: PAIN
     Dosage: UNK
     Route: 062
     Dates: start: 20161219, end: 20161224
  2. GABAPENTIN. [Suspect]
     Active Substance: GABAPENTIN
     Dosage: 300 MG, 2X/DAY (TWICE DAILY BY MOUTH IN THE EVENING)
     Route: 048
  3. LETROZOLE. [Suspect]
     Active Substance: LETROZOLE
     Indication: BURNING SENSATION
     Dosage: UNK
     Dates: end: 201607
  4. HYDROCODONE BITARTRATE AND ACETAMINOPHEN [Suspect]
     Active Substance: ACETAMINOPHEN\HYDROCODONE BITARTRATE
     Indication: BURNING SENSATION
     Dosage: UNK (TAKING HALF OF PILL)
  5. FASLODEX [Concomitant]
     Active Substance: FULVESTRANT
     Dosage: ONE SHOT ON EACH SIDE OF BUTTOCKS, ONCE MONTHLY
     Dates: start: 201607
  6. IBRANCE [Suspect]
     Active Substance: PALBOCICLIB
     Dosage: 100 MG, CYCLIC
     Route: 048
     Dates: start: 2015, end: 20171111
  7. HYDROCODONE BITARTRATE AND ACETAMINOPHEN [Suspect]
     Active Substance: ACETAMINOPHEN\HYDROCODONE BITARTRATE
     Indication: PAIN
     Dosage: UNK, (10-325 MG, 3 TO 4 TIMES DAILY)
     Dates: start: 201509
  8. FULVESTRANT. [Concomitant]
     Active Substance: FULVESTRANT
     Indication: PAIN
     Dosage: 25 MG, MONTHLY
  9. FENTANYL CITRATE. [Suspect]
     Active Substance: FENTANYL CITRATE
     Dosage: UNK (USED APPROXIMATELY 2 PATCHES OF FENTANYL FOR MAYBE A WEEK OR LESS)
  10. PANTOPRAZOLE [Concomitant]
     Active Substance: PANTOPRAZOLE
     Indication: ERUCTATION
  11. PANTOPRAZOLE [Concomitant]
     Active Substance: PANTOPRAZOLE
     Indication: ABDOMINAL DISCOMFORT
     Dosage: 40 MG, 1X/DAY (TOOK 2 OR 3)
     Route: 048
     Dates: start: 20171112, end: 20171113
  12. LYRICA [Suspect]
     Active Substance: PREGABALIN
     Indication: PAIN
     Dosage: 50 MG, UNK
     Dates: start: 20161219, end: 20161224
  13. GABAPENTIN. [Suspect]
     Active Substance: GABAPENTIN
     Indication: BURNING SENSATION
     Dosage: 300 MG, UNK
  14. GABAPENTIN. [Suspect]
     Active Substance: GABAPENTIN
     Dosage: 600 MG, 2X/DAY
     Dates: start: 2016
  15. HYDROCODONE [Concomitant]
     Active Substance: HYDROCODONE
     Indication: PAIN
     Dosage: 1 DF, UNK (ONE TABLET 4-5 TIMES A DAY)
     Route: 048
  16. LETROZOLE. [Suspect]
     Active Substance: LETROZOLE
     Dosage: 25 MG, 1X/DAY
     Route: 048
     Dates: end: 20171111
  17. IBRANCE [Suspect]
     Active Substance: PALBOCICLIB
     Indication: BREAST CANCER
     Dosage: 100 MG, CYCLIC, (21 DAYS ON 7 DAYS OFF)
  18. IBRANCE [Suspect]
     Active Substance: PALBOCICLIB
     Dosage: UNK
  19. HYDROCODONE [Concomitant]
     Active Substance: HYDROCODONE
     Indication: BURNING SENSATION

REACTIONS (7)
  - Asthenia [Unknown]
  - Abdominal distension [Unknown]
  - Dizziness [Unknown]
  - Fluid retention [Recovering/Resolving]
  - Headache [Unknown]
  - Sleep disorder [Unknown]
  - Neoplasm progression [Unknown]

NARRATIVE: CASE EVENT DATE: 2017
